FAERS Safety Report 8488005 (Version 2)
Quarter: 2017Q2

REPORT INFORMATION
  Report Type: Spontaneous
  Country: JP (occurrence: JP)
  Receive Date: 20120402
  Receipt Date: 20170530
  Transmission Date: 20170830
  Serious: Yes (Disabling, Other)
  Sender: FDA-Public Use
  Company Number: JP-PFIZER INC-2012076580

PATIENT
  Age: 58 Year
  Sex: Female

DRUGS (1)
  1. SOLU-MEDROL [Suspect]
     Active Substance: METHYLPREDNISOLONE SODIUM SUCCINATE
     Dosage: 500 MG, DAILY
     Dates: start: 198612, end: 198701

REACTIONS (3)
  - Osteonecrosis [Unknown]
  - Arthritis [Unknown]
  - Motor dysfunction [Unknown]
